FAERS Safety Report 4313306-1 (Version None)
Quarter: 2004Q1

REPORT INFORMATION
  Report Type: 
  Country: None (occurrence: None)
  Receive Date: 20040304
  Receipt Date: 20040220
  Transmission Date: 20041129
  Serious: Yes (Hospitalization)
  Sender: FDA-Public Use
  Company Number: 040220-0000276

PATIENT
  Age: 69 Year
  Sex: Male

DRUGS (15)
  1. TRANXENE [Suspect]
     Dosage: 10.0 MG;QD;PO
     Route: 048
     Dates: start: 20021206, end: 20030130
  2. DEPAKENE [Suspect]
     Indication: BRAIN NEOPLASM MALIGNANT
     Dosage: 500.0 MG; QD; PO
     Route: 048
     Dates: start: 20021206, end: 20030130
  3. DEPAKENE [Suspect]
     Indication: BRAIN NEOPLASM MALIGNANT
     Dosage: 100.0 MG; QD; PO
     Route: 048
     Dates: start: 20030103, end: 20030116
  4. DEAPKINE CHRONO (VALPROIC ACID/VALPROATE SODIUM) [Suspect]
     Indication: BRAIN NEOPLASM MALIGNANT
     Dosage: 200.0 MG;QD; PO
     Route: 048
     Dates: start: 20021227, end: 20021227
  5. PROCARBAZINE HYDROCHLORIDE (PROCARBAZINE HYDROCHLORIDE) [Suspect]
     Indication: BRAIN NEOPLASM MALIGNANT
     Dosage: 50.0 MG; BID; PO
     Route: 048
     Dates: start: 20030103, end: 20030116
  6. LOMUSTINE (LOMUSTINE) [Suspect]
     Indication: BRAIN NEOPLASM MALIGNANT
     Dosage: 200.0 MG; QD; PO
     Route: 048
     Dates: start: 20030124, end: 20030124
  7. LOMUSTINE (LOMUSTINE) [Suspect]
     Indication: BRAIN NEOPLASM MALIGNANT
     Dosage: 200.0 MG; PO
     Route: 048
     Dates: start: 20030119, end: 20030123
  8. LOMUSTINE (LOMUSTINE) [Suspect]
     Indication: BRAIN NEOPLASM MALIGNANT
     Dates: start: 20030103, end: 20030103
  9. LOMUSTINE (LOMUSTINE) [Suspect]
     Indication: BRAIN NEOPLASM MALIGNANT
     Dates: start: 20021227, end: 20021227
  10. CEFOTAXIME SODIUM [Suspect]
     Dosage: 3000.0 MG; QD
     Dates: start: 20030119, end: 20030123
  11. VINCRISTINE SULFATE [Suspect]
     Indication: BRAIN NEOPLASM MALIGNANT
     Dosage: 2.0 MG; QD
     Dates: start: 20030103, end: 20030124
  12. APOREX (PARACETAMOL/DEXTROPROPOXYPHENE HYDROCHLORIDE) [Suspect]
     Dosage: 3000.0 MG; QD; PO
     Route: 048
     Dates: start: 20021206, end: 20030130
  13. PREDNISOLONE SODIUM SULFOBENZOATE (PREDNISOLONE SODIUM SULFOBENZOATE) [Suspect]
     Dates: start: 20021206, end: 20030225
  14. POTASSIUM CHLORIDE [Concomitant]
  15. OMEPRAZOLE [Concomitant]

REACTIONS (8)
  - ADRENAL INSUFFICIENCY [None]
  - APLASIA [None]
  - CHILLS [None]
  - CIRCULATORY COLLAPSE [None]
  - HEPATITIS CHOLESTATIC [None]
  - HYPERTHERMIA [None]
  - PURPURA [None]
  - TOXIC EPIDERMAL NECROLYSIS [None]
